FAERS Safety Report 5386292-3 (Version None)
Quarter: 2007Q3

REPORT INFORMATION
  Report Type: 
  Country: None (occurrence: None)
  Receive Date: 20070713
  Receipt Date: 20070709
  Transmission Date: 20080115
  Serious: Yes (Death, Hospitalization)
  Sender: FDA-Public Use
  Company Number: PHHO2007ES05551

PATIENT
  Age: 58 Year
  Sex: Female

DRUGS (5)
  1. CERTICAN [Suspect]
     Indication: RENAL TRANSPLANT
     Dosage: 0.5 MG, BID
     Route: 048
     Dates: start: 20070222, end: 20070510
  2. SEGURIL [Suspect]
     Dosage: 80 MG, QD
     Route: 048
     Dates: start: 20070304
  3. NEORAL [Suspect]
     Indication: RENAL TRANSPLANT
     Dosage: 475 + 50 MG/DAILY
     Route: 048
     Dates: start: 20070222, end: 20070411
  4. SIMULECT [Concomitant]
     Indication: RENAL TRANSPLANT
     Dosage: 20 MG, ONCE/SINGLE
     Dates: start: 20070222, end: 20070222
  5. SIMULECT [Concomitant]
     Dosage: 20 MG, ONCE/SINGLE
     Dates: start: 20070226, end: 20070226

REACTIONS (13)
  - ABDOMINAL PAIN [None]
  - ATRIAL FIBRILLATION [None]
  - COMPLICATIONS OF TRANSPLANT SURGERY [None]
  - DEEP VEIN THROMBOSIS [None]
  - DIARRHOEA [None]
  - GASTROINTESTINAL HAEMORRHAGE [None]
  - HERPES SIMPLEX [None]
  - HYPERURICAEMIA [None]
  - NEPHROPATHY TOXIC [None]
  - RENAL IMPAIRMENT [None]
  - RENAL TUBULAR NECROSIS [None]
  - URATE NEPHROPATHY [None]
  - VOMITING [None]
